FAERS Safety Report 15080985 (Version 4)
Quarter: 2019Q1

REPORT INFORMATION
  Report Type: Report from Study
  Country: None (occurrence: US)
  Receive Date: 20180628
  Receipt Date: 20190109
  Transmission Date: 20190417
  Serious: Yes (Death, Hospitalization)
  Sender: FDA-Public Use
  Company Number: US-ABBVIE-18K-163-2402827-00

PATIENT
  Age: 73 Year
  Sex: Male
  Weight: 81.27 kg

DRUGS (2)
  1. VENCLEXTA [Suspect]
     Active Substance: VENETOCLAX
     Dosage: DAILY FOR 14 DAYS EVERY MONTH
     Route: 048
     Dates: start: 201610
  2. VENCLEXTA [Suspect]
     Active Substance: VENETOCLAX
     Indication: ACUTE MYELOID LEUKAEMIA
     Route: 048
     Dates: start: 20160620, end: 201610

REACTIONS (4)
  - Bone marrow transplant [Unknown]
  - Complications of bone marrow transplant [Unknown]
  - Off label use [Unknown]
  - Death [Fatal]

NARRATIVE: CASE EVENT DATE: 20180325
